FAERS Safety Report 21322195 (Version 1)
Quarter: 2022Q3

REPORT INFORMATION
  Report Type: Spontaneous
  Country: US (occurrence: None)
  Receive Date: 20220909
  Receipt Date: 20220909
  Transmission Date: 20221026
  Serious: No
  Sender: FDA-Public Use
  Company Number: None

PATIENT
  Sex: Female
  Weight: 50.35 kg

DRUGS (9)
  1. AFINITOR [Suspect]
     Active Substance: EVEROLIMUS
     Indication: Breast cancer female
     Dosage: FREQUENCY : DAILY;?
     Route: 048
     Dates: start: 202206, end: 20220909
  2. CALCIUM [Concomitant]
     Active Substance: CALCIUM
  3. CARVEDILOL [Concomitant]
     Active Substance: CARVEDILOL
  4. FASLODEX [Concomitant]
     Active Substance: FULVESTRANT
  5. MAGNESIUM ASPARTATE [Concomitant]
     Active Substance: MAGNESIUM ASPARTATE
  6. MIRALAX [Concomitant]
     Active Substance: POLYETHYLENE GLYCOL 3350
  7. PRAVASTATIN [Concomitant]
     Active Substance: PRAVASTATIN
  8. VIT -D3 [Concomitant]
  9. ZOMETA [Concomitant]
     Active Substance: ZOLEDRONIC ACID

REACTIONS (3)
  - Therapy interrupted [None]
  - Platelet count abnormal [None]
  - White blood cell count decreased [None]
